FAERS Safety Report 9608055 (Version 1)
Quarter: 2013Q4

REPORT INFORMATION
  Report Type: Spontaneous
  Country: US (occurrence: None)
  Receive Date: 20131007
  Receipt Date: 20131007
  Transmission Date: 20140711
  Serious: Yes (Disabling, Other)
  Sender: FDA-Public Use
  Company Number: ACO_38692_2013

PATIENT
  Sex: 0

DRUGS (17)
  1. AMPYRA (DALFAMPRIDINE) TABLET, 10MG [Suspect]
     Indication: PRODUCT USED FOR UNKNOWN INDICATION
     Dosage: UNKNOWN
  2. VITAMIN E [Suspect]
     Indication: PRODUCT USED FOR UNKNOWN INDICATION
     Dosage: 400, BID, UNKNOWN
  3. TOPAMAX (TOPIRAMATE) [Concomitant]
  4. HYDRALAZINE (HYDRALAZINE HYDROCHLORIDE) [Concomitant]
  5. LETROZOLE (LETROZOLE) [Concomitant]
  6. MULTIVITAMIN (VITAMINS NOS) [Concomitant]
  7. GABAPENTIN (GABAPENTIN) [Concomitant]
  8. CALCIUM 600+D (CALCIUM, COLECALCIFEROL) [Concomitant]
  9. OMEGA 3 FISH OIL (FISH OIL) [Concomitant]
  10. LECITHINE (LECITHIN) [Concomitant]
  11. FLAXSEED OIL (FLAXSEED OIL) [Concomitant]
  12. ASA (ACETYLSALICYLIC ACID) [Concomitant]
  13. SOMA (CARISOPRODOL) [Concomitant]
  14. ATIVAN (LORAZEPAM) [Concomitant]
  15. TRAMADOL (TRAMADOL HYDROCHLORIDE) [Concomitant]
  16. COPAXONE [Concomitant]
  17. NEURONTIN (GABAPENTIN) [Concomitant]

REACTIONS (8)
  - Subarachnoid haemorrhage [None]
  - Neuropathy peripheral [None]
  - Sleep apnoea syndrome [None]
  - Depression [None]
  - Anxiety [None]
  - Condition aggravated [None]
  - Multiple sclerosis [None]
  - Drug hypersensitivity [None]
